FAERS Safety Report 14726143 (Version 1)
Quarter: 2018Q2

REPORT INFORMATION
  Report Type: Spontaneous
  Country: FR (occurrence: FR)
  Receive Date: 20180406
  Receipt Date: 20180406
  Transmission Date: 20180711
  Serious: Yes (Other)
  Sender: FDA-Public Use
  Company Number: FR-MERCK KGAA-2045231

PATIENT
  Age: 51 Year
  Sex: Female
  Weight: 77 kg

DRUGS (1)
  1. NOVOTHYROX [Suspect]
     Active Substance: LEVOTHYROXINE SODIUM
     Indication: THYROIDECTOMY
     Route: 048
     Dates: start: 20170428, end: 20171004

REACTIONS (22)
  - Pain [Recovering/Resolving]
  - Onychoclasis [Recovering/Resolving]
  - Menstrual disorder [Recovering/Resolving]
  - Insomnia [Recovering/Resolving]
  - Headache [Not Recovered/Not Resolved]
  - Blood thyroid stimulating hormone [Not Recovered/Not Resolved]
  - Memory impairment [Recovering/Resolving]
  - Weight increased [Recovering/Resolving]
  - Diabetes insipidus [Unknown]
  - Dysphagia [Unknown]
  - Disturbance in attention [Recovering/Resolving]
  - Diffuse alopecia [Recovering/Resolving]
  - Dry skin [Recovering/Resolving]
  - Fatigue [Not Recovered/Not Resolved]
  - Affective disorder [Recovering/Resolving]
  - Visual impairment [Recovering/Resolving]
  - Blood triglycerides increased [Not Recovered/Not Resolved]
  - Arthralgia [Not Recovered/Not Resolved]
  - Muscle spasms [Not Recovered/Not Resolved]
  - Vomiting [Not Recovered/Not Resolved]
  - Depression [Recovering/Resolving]
  - Palpitations [Recovering/Resolving]

NARRATIVE: CASE EVENT DATE: 2017
